FAERS Safety Report 9470402 (Version 1)
Quarter: 2013Q3

REPORT INFORMATION
  Report Type: Spontaneous
  Country: DE (occurrence: DE)
  Receive Date: 20130822
  Receipt Date: 20130822
  Transmission Date: 20140515
  Serious: Yes (Hospitalization, Other)
  Sender: FDA-Public Use
  Company Number: PHHY2013DE090285

PATIENT
  Sex: 0

DRUGS (2)
  1. GILENYA [Suspect]
     Indication: RELAPSING-REMITTING MULTIPLE SCLEROSIS
     Dosage: 0.5 MG, QD
     Route: 048
     Dates: start: 20101018, end: 20101110
  2. COPAXONE [Concomitant]
     Indication: RELAPSING-REMITTING MULTIPLE SCLEROSIS
     Dosage: 20 MG, QD
     Route: 058
     Dates: start: 20101022

REACTIONS (15)
  - Cerebral haemorrhage [Recovered/Resolved]
  - Memory impairment [Recovered/Resolved]
  - Dizziness [Unknown]
  - Visual impairment [Recovered/Resolved]
  - Headache [Unknown]
  - Nausea [Unknown]
  - Confusional state [Recovered/Resolved]
  - Hemianopia [Recovered/Resolved]
  - Cerebrovascular accident [Unknown]
  - Grand mal convulsion [Recovered/Resolved]
  - Disorientation [Recovered/Resolved]
  - Agitation [Recovered/Resolved]
  - Blood creatine phosphokinase increased [Unknown]
  - White blood cell count increased [Unknown]
  - Blood glucose increased [Unknown]
